FAERS Safety Report 13213687 (Version 1)
Quarter: 2017Q1

REPORT INFORMATION
  Report Type: Spontaneous
  Country: AU (occurrence: US)
  Receive Date: 20170209
  Receipt Date: 20170209
  Transmission Date: 20170428
  Serious: No
  Sender: FDA-Public Use
  Company Number: US-ALLERGAN-1665419US

PATIENT
  Sex: Male

DRUGS (1)
  1. BOTOX COSMETIC [Suspect]
     Active Substance: ONABOTULINUMTOXINA
     Indication: SKIN WRINKLING
     Route: 030

REACTIONS (6)
  - Eye irritation [Unknown]
  - Photophobia [Unknown]
  - Ocular hyperaemia [Unknown]
  - Conjunctivitis viral [Unknown]
  - Eye infection [Unknown]
  - Vision blurred [Unknown]
